FAERS Safety Report 5255696-1 (Version None)
Quarter: 2007Q1

REPORT INFORMATION
  Report Type: 
  Country: None (occurrence: None)
  Receive Date: 20070305
  Receipt Date: 20070221
  Transmission Date: 20070707
  Serious: Yes (Other)
  Sender: FDA-Public Use
  Company Number: US-PFIZER INC-2007014026

PATIENT
  Sex: Female
  Weight: 74.8 kg

DRUGS (1)
  1. CELEBREX [Suspect]
     Indication: OSTEOARTHRITIS

REACTIONS (5)
  - ANEURYSM [None]
  - CEREBROVASCULAR ACCIDENT [None]
  - CONVULSION [None]
  - SUBDURAL HAEMATOMA [None]
  - THROMBOSIS [None]
